FAERS Safety Report 23080784 (Version 1)
Quarter: 2023Q4

REPORT INFORMATION
  Report Type: Spontaneous
  Country: US (occurrence: None)
  Receive Date: 20231018
  Receipt Date: 20231018
  Transmission Date: 20240109
  Serious: Yes (Hospitalization)
  Sender: FDA-Public Use
  Company Number: None

PATIENT
  Age: 65 Year
  Sex: Male

DRUGS (1)
  1. GABAPENTIN [Suspect]
     Active Substance: GABAPENTIN
     Dates: start: 20220826

REACTIONS (3)
  - Encephalopathy [None]
  - Dizziness [None]
  - Toxicity to various agents [None]

NARRATIVE: CASE EVENT DATE: 20230203
